FAERS Safety Report 4411923-1 (Version None)
Quarter: 2004Q3

REPORT INFORMATION
  Report Type: 
  Country: None (occurrence: None)
  Receive Date: 20040730
  Receipt Date: 20040310
  Transmission Date: 20050211
  Serious: No
  Sender: FDA-Public Use
  Company Number: US-GLAXOSMITHKLINE-A0502159A

PATIENT
  Age: 53 Year
  Sex: Female

DRUGS (5)
  1. ZANTAC [Suspect]
     Indication: ILL-DEFINED DISORDER
     Dosage: 150MG TWICE PER DAY
     Route: 048
  2. NEURONTIN [Concomitant]
  3. PLAVIX [Concomitant]
  4. ZANAFLEX [Concomitant]
  5. RELAFEN [Concomitant]

REACTIONS (1)
  - DRUG INEFFECTIVE [None]
